FAERS Safety Report 12880878 (Version 1)
Quarter: 2016Q4

REPORT INFORMATION
  Report Type: Spontaneous
  Country: JP (occurrence: None)
  Receive Date: 20161024
  Receipt Date: 20161024
  Transmission Date: 20170207
  Serious: Yes (Hospitalization, Other)
  Sender: FDA-Public Use
  Company Number: JP2016K5486LIT

PATIENT
  Age: 26 Year
  Sex: Male

DRUGS (6)
  1. CARVEDILOL WORLD (CARVEDILOL) [Suspect]
     Active Substance: CARVEDILOL
     Indication: CARDIAC FAILURE
  2. DOBUTAMINE [Concomitant]
     Active Substance: DOBUTAMINE\DOBUTAMINE HYDROCHLORIDE
  3. MILRINONE [Concomitant]
     Active Substance: MILRINONE
  4. FUROSEMIDE. [Suspect]
     Active Substance: FUROSEMIDE
     Indication: CARDIAC FAILURE
     Dates: end: 2011
  5. ENALAPRIL WORLD (ENALAPRIL) UNKNOWN [Suspect]
     Active Substance: ENALAPRIL
     Indication: CARDIAC DISORDER
     Dates: start: 200905, end: 2011
  6. AMIODARONE WORLD (AMIODARONE HYDROCHLORIDE) UNKNOWN [Suspect]
     Active Substance: AMIODARONE
     Indication: VENTRICULAR TACHYCARDIA
     Dates: end: 2011

REACTIONS (6)
  - Drug ineffective [None]
  - Blood lactate dehydrogenase increased [None]
  - Aspartate aminotransferase increased [None]
  - Alanine aminotransferase increased [None]
  - Pulmonary alveolar haemorrhage [None]
  - Cardiac failure [None]

NARRATIVE: CASE EVENT DATE: 2011
